FAERS Safety Report 8812663 (Version 2)
Quarter: 2012Q4

REPORT INFORMATION
  Report Type: Report from Study
  Country: BR (occurrence: BR)
  Receive Date: 20120927
  Receipt Date: 20121012
  Transmission Date: 20130627
  Serious: Yes (Other)
  Sender: FDA-Public Use
  Company Number: BR-ABBOTT-12P-020-0983440-00

PATIENT
  Age: 48 Year
  Sex: Male
  Weight: 85 kg

DRUGS (7)
  1. HUMIRA [Suspect]
     Indication: RHEUMATOID ARTHRITIS
     Dosage: Once
     Route: 058
     Dates: start: 20120919
  2. METHOTREXATE [Concomitant]
     Indication: PRODUCT USED FOR UNKNOWN INDICATION
     Dosage: on Mondays
     Route: 048
     Dates: start: 2003
  3. PREDNISONE [Concomitant]
     Indication: ARTHRITIS
     Route: 048
     Dates: start: 2003
  4. FOLIC ACID [Concomitant]
     Indication: ARTHRITIS
     Route: 048
     Dates: start: 2003
  5. OMEPRAZOLE [Concomitant]
     Indication: GASTRIC DISORDER
     Dosage: In fasting
     Route: 048
     Dates: start: 2003
  6. PARACETAMOL [Concomitant]
     Indication: PAIN
     Route: 048
     Dates: start: 2003
  7. SODIUM ALENDRONATE [Concomitant]
     Indication: PRODUCT USED FOR UNKNOWN INDICATION
     Dosage: In fasting on Saturdays

REACTIONS (13)
  - Loss of consciousness [Recovering/Resolving]
  - Syncope [Recovering/Resolving]
  - Feeling abnormal [Recovering/Resolving]
  - Pallor [Unknown]
  - Eye disorder [Unknown]
  - Urinary incontinence [Unknown]
  - Dyspnoea [Unknown]
  - Hypoaesthesia [Unknown]
  - Headache [Unknown]
  - Malaise [Unknown]
  - Feeling hot [Not Recovered/Not Resolved]
  - Sensory disturbance [Not Recovered/Not Resolved]
  - Renal pain [Not Recovered/Not Resolved]
